FAERS Safety Report 7550204 (Version 5)
Quarter: 2019Q4

REPORT INFORMATION
  Report Type: Report from Study
  Country: JP (occurrence: JP)
  Receive Date: 20100823
  Receipt Date: 20191226
  Transmission Date: 20200122
  Serious: Yes (Death, Hospitalization)
  Sender: FDA-Public Use
  Company Number: JP-ALEXION-A201000982

PATIENT
  Sex: Female

DRUGS (3)
  1. PREDNISOLONE. [Concomitant]
     Active Substance: PREDNISOLONE
     Dosage: 60 MG, UNK
     Dates: start: 20100518, end: 20100811
  2. CICLOSPORIN [Concomitant]
     Active Substance: CYCLOSPORINE
     Dosage: 200 MG, UNK
     Dates: start: 20050503, end: 20100729
  3. SOLIRIS [Suspect]
     Active Substance: ECULIZUMAB
     Indication: PAROXYSMAL NOCTURNAL HAEMOGLOBINURIA
     Dosage: 600 MG, QW
     Route: 042
     Dates: start: 20100721, end: 20100728

REACTIONS (5)
  - Gastrointestinal haemorrhage [Unknown]
  - Pneumocystis jirovecii pneumonia [Recovered/Resolved]
  - Cerebral haemorrhage [Fatal]
  - Pneumonia [Unknown]
  - Coma [Unknown]

NARRATIVE: CASE EVENT DATE: 20100722
